FAERS Safety Report 10160368 (Version 2)
Quarter: 2014Q2

REPORT INFORMATION
  Report Type: Spontaneous
  Country: GB (occurrence: GB)
  Receive Date: 20140508
  Receipt Date: 20140522
  Transmission Date: 20141212
  Serious: Yes (Hospitalization)
  Sender: FDA-Public Use
  Company Number: GB-ACTAVIS-2014-09229

PATIENT
  Age: 31 Year
  Sex: Male

DRUGS (5)
  1. CLOZAPINE (UNKNOWN) [Suspect]
     Indication: SCHIZOPHRENIA, PARANOID TYPE
     Dosage: UNK
     Route: 048
  2. CLOZAPINE (UNKNOWN) [Suspect]
     Indication: PSYCHOTIC DISORDER
     Dosage: 325 MG, DAILY
     Route: 048
  3. CLOZAPINE (UNKNOWN) [Suspect]
     Dosage: 300 MG, DAILY
     Route: 048
  4. FLUOXETINE (UNKNOWN) [Suspect]
     Indication: SCHIZOPHRENIA, PARANOID TYPE
     Dosage: 40 MG, DAILY
     Route: 065
  5. FLUOXETINE (UNKNOWN) [Suspect]
     Indication: PSYCHOTIC DISORDER
     Dosage: UNK
     Route: 065

REACTIONS (7)
  - Psychotic disorder [Recovering/Resolving]
  - Hallucination [Recovering/Resolving]
  - Paranoia [Recovering/Resolving]
  - Feeling abnormal [Recovering/Resolving]
  - Anxiety [Recovering/Resolving]
  - Sedation [Recovering/Resolving]
  - Incorrect dose administered [Unknown]
